FAERS Safety Report 5808804-5 (Version None)
Quarter: 2008Q3

REPORT INFORMATION
  Report Type: 
  Country: None (occurrence: None)
  Receive Date: 20080714
  Receipt Date: 20080703
  Transmission Date: 20090109
  Serious: Yes (Other)
  Sender: FDA-Public Use
  Company Number: B0360345A

PATIENT
  Age: 31 Year
  Sex: Male

DRUGS (2)
  1. PAROXETINE HCL [Suspect]
     Dates: start: 19950509, end: 20000714
  2. LITHIUM CARBONATE [Concomitant]
     Dosage: 600MG PER DAY
     Route: 065

REACTIONS (17)
  - ABDOMINAL PAIN [None]
  - AFFECT LABILITY [None]
  - AGGRESSION [None]
  - AMNESIA [None]
  - ANGER [None]
  - ANXIETY [None]
  - ARTHRALGIA [None]
  - DEPRESSION [None]
  - DIARRHOEA [None]
  - DIZZINESS [None]
  - EMOTIONAL DISORDER [None]
  - HEADACHE [None]
  - HYPERAESTHESIA [None]
  - IRRITABILITY [None]
  - PARAESTHESIA [None]
  - VISUAL IMPAIRMENT [None]
  - WITHDRAWAL SYNDROME [None]
